FAERS Safety Report 8605712-1 (Version None)
Quarter: 2012Q3

REPORT INFORMATION
  Report Type: 
  Country: None (occurrence: None)
  Receive Date: 20120820
  Receipt Date: 20120814
  Transmission Date: 20120928
  Serious: Yes (Death, Hospitalization)
  Sender: FDA-Public Use
  Company Number: DE-BAYER-2012-039602

PATIENT
  Age: 80 Year
  Sex: Male
  Weight: 95 kg

DRUGS (13)
  1. PANTOPRAZOLE [Concomitant]
     Dosage: 20 MG, QD
     Dates: start: 20120101
  2. METOPROLOL SUCCINATE [Concomitant]
     Dosage: 95 MG, BID
     Dates: start: 20120101
  3. METAMIZOL NATRIUM [Concomitant]
     Dosage: 40 GTT, PRN
     Dates: start: 20120426
  4. MARCUMAR [Concomitant]
     Dosage: UNK, PRN
     Dates: end: 20120402
  5. ALLOPURINOL [Concomitant]
     Dosage: 100 MG, QD
     Dates: start: 20120101, end: 20120422
  6. TIOTROPIUM [Concomitant]
     Dosage: 18 ?G, QD
     Dates: start: 20120101
  7. BUDESONIDE W/FORMOTEROL FUMARATE [Concomitant]
     Dosage: DOSE: 160/4.5, BID
     Dates: start: 20120101
  8. ENOXAPARIN [Concomitant]
     Dosage: 60 MG, QD
     Route: 058
     Dates: start: 20120402
  9. TORSEMIDE [Concomitant]
     Dosage: 10 MG, QD
     Dates: start: 20120101
  10. METFORMIN HCL [Concomitant]
     Dosage: 850 MG, TID
     Dates: start: 20120101
  11. ENALAPRIL MALEATE [Concomitant]
     Dosage: 10 MG, QD
     Dates: start: 20120101, end: 20120422
  12. SPIRONOLACTONE [Concomitant]
     Dosage: 100 MG, QD
     Dates: start: 20120426
  13. SORAFENIB [Suspect]
     Indication: HEPATIC NEOPLASM MALIGNANT
     Dosage: DAILY DOSE: 400MG
     Dates: start: 20120402, end: 20120422

REACTIONS (6)
  - GENERAL PHYSICAL HEALTH DETERIORATION [None]
  - ASCITES [None]
  - GENERALISED OEDEMA [None]
  - HEPATIC NEOPLASM MALIGNANT [None]
  - DIARRHOEA [None]
  - FATIGUE [None]
